FAERS Safety Report 13359825 (Version 4)
Quarter: 2017Q4

REPORT INFORMATION
  Report Type: Report from Study
  Country: JP (occurrence: JP)
  Receive Date: 20170322
  Receipt Date: 20171227
  Transmission Date: 20180320
  Serious: Yes (Death, Hospitalization)
  Sender: FDA-Public Use
  Company Number: JP-B.I. PHARMACEUTICALS,INC./RIDGEFIELD-2017-NB-001430

PATIENT
  Age: 69 Year
  Sex: Male
  Weight: 66.2 kg

DRUGS (1)
  1. PRAZAXA [Suspect]
     Active Substance: DABIGATRAN ETEXILATE MESYLATE
     Indication: ARRHYTHMIA
     Route: 048

REACTIONS (4)
  - Cerebral haemorrhage [Fatal]
  - Subdural haematoma [Recovered/Resolved]
  - Road traffic accident [Unknown]
  - Head injury [Fatal]

NARRATIVE: CASE EVENT DATE: 20170227
